FAERS Safety Report 4445807-X (Version None)
Quarter: 2004Q3

REPORT INFORMATION
  Report Type: 
  Country: None (occurrence: None)
  Receive Date: 20040903
  Receipt Date: 20040824
  Transmission Date: 20050211
  Serious: Yes (Other)
  Sender: FDA-Public Use
  Company Number: 2004-BP-07278AU

PATIENT

DRUGS (2)
  1. MOBIC [Suspect]
     Indication: ARTHRITIS
     Dosage: 15 MG (15 MG, 15 MG DAILY) PO
     Route: 048
     Dates: start: 20031130
  2. VOLTAREN (DICLOFENAC POTASSIUM) (TA) [Concomitant]

REACTIONS (2)
  - METABOLIC ACIDOSIS [None]
  - RENAL IMPAIRMENT [None]
